FAERS Safety Report 4530570-4 (Version None)
Quarter: 2004Q4

REPORT INFORMATION
  Report Type: 
  Country: None (occurrence: None)
  Receive Date: 20041216
  Receipt Date: 20041206
  Transmission Date: 20050328
  Serious: Yes (Disabling, Other)
  Sender: FDA-Public Use
  Company Number: 2004-12-0141

PATIENT
  Sex: Male

DRUGS (2)
  1. GENTALLINE (GENTAMICIN SULFATE) INJECTABLE SOLUTION [Suspect]
     Indication: PROSTATE INFECTION
     Dosage: 160 MG QD INTRAMUSCULAR
     Route: 030
     Dates: start: 20030701, end: 20030708
  2. AUGMENTIN '125' [Concomitant]

REACTIONS (6)
  - ACTIVITIES OF DAILY LIVING IMPAIRED [None]
  - AREFLEXIA [None]
  - AUDIOGRAM ABNORMAL [None]
  - BALANCE DISORDER [None]
  - IMPAIRED WORK ABILITY [None]
  - VESTIBULAR DISORDER [None]
